FAERS Safety Report 12555214 (Version 1)
Quarter: 2016Q3

REPORT INFORMATION
  Report Type: Spontaneous
  Country: US (occurrence: US)
  Receive Date: 20160714
  Receipt Date: 20160714
  Transmission Date: 20161109
  Serious: Yes (Hospitalization)
  Sender: FDA-Public Use
  Company Number: US-DRREDDYS-USA/USA/16/0080953

PATIENT
  Age: 70 Year
  Sex: Male

DRUGS (2)
  1. RISPERIDONE. [Suspect]
     Active Substance: RISPERIDONE
     Indication: AGGRESSION
     Route: 065
  2. HALOPERIDOL. [Suspect]
     Active Substance: HALOPERIDOL
     Indication: AGGRESSION
     Route: 065

REACTIONS (3)
  - Blood creatine phosphokinase increased [Recovering/Resolving]
  - Catatonia [Recovering/Resolving]
  - Medication error [Unknown]
